FAERS Safety Report 24142489 (Version 3)
Quarter: 2024Q3

REPORT INFORMATION
  Report Type: Spontaneous
  Country: US (occurrence: None)
  Receive Date: 20240726
  Receipt Date: 20240816
  Transmission Date: 20241017
  Serious: Yes (Death, Life-Threatening, Hospitalization, Other)
  Sender: ASTRAZENECA
  Company Number: 2024A167036

PATIENT
  Sex: Male
  Weight: 124 kg

DRUGS (3)
  1. CALQUENCE [Suspect]
     Active Substance: ACALABRUTINIB
     Indication: Mantle cell lymphoma
     Route: 048
     Dates: start: 20231001, end: 20240626
  2. BENDAMUSTINE [Concomitant]
     Active Substance: BENDAMUSTINE
  3. BENDAMUSTINE/RITUXIMAB [Concomitant]

REACTIONS (10)
  - Myocardial infarction [Fatal]
  - Osteomyelitis [Fatal]
  - Sepsis [Fatal]
  - Acute kidney injury [Fatal]
  - Diabetes mellitus [Fatal]
  - Fall [Unknown]
  - Cardiac arrest [Fatal]
  - Lumbar vertebral fracture [Unknown]
  - Pain [Unknown]
  - Skin laceration [Unknown]
